FAERS Safety Report 16366421 (Version 1)
Quarter: 2019Q2

REPORT INFORMATION
  Report Type: Spontaneous
  Country: NL (occurrence: NL)
  Receive Date: 20190529
  Receipt Date: 20190529
  Transmission Date: 20190711
  Serious: Yes (Life-Threatening)
  Sender: FDA-Public Use
  Company Number: NL-TEVA-2019-NL-1054913

PATIENT
  Age: 88 Year
  Sex: Female
  Weight: 80 kg

DRUGS (1)
  1. INDAPAMIDE TABLET, 2,5 MG (MILLIGRAM) [Suspect]
     Active Substance: INDAPAMIDE
     Indication: HYPERTENSION
     Dosage: 2,5MG
     Dates: start: 20170101, end: 20190501

REACTIONS (1)
  - Hyponatraemia [Recovered/Resolved]

NARRATIVE: CASE EVENT DATE: 20190425
